FAERS Safety Report 23946462 (Version 3)
Quarter: 2024Q3

REPORT INFORMATION
  Report Type: Report from Study
  Country: US (occurrence: US)
  Receive Date: 20240606
  Receipt Date: 20240701
  Transmission Date: 20241017
  Serious: Yes (Hospitalization)
  Sender: EISAI
  Company Number: US-Eisai-EC-2024-167458

PATIENT
  Age: 62 Year
  Sex: Female

DRUGS (3)
  1. LENVIMA [Suspect]
     Active Substance: LENVATINIB
     Indication: Endometrial cancer
     Dosage: MONDAY THRU FRIDAYS ONLY?THERAPY STOPPED SOMEWHERE IN --2023
     Route: 048
     Dates: start: 202301, end: 2023
  2. LENVIMA [Suspect]
     Active Substance: LENVATINIB
     Dosage: MONDAY THRU FRIDAYS ONLY
     Route: 048
     Dates: start: 2023
  3. LENVIMA [Suspect]
     Active Substance: LENVATINIB
     Dosage: MONDAY THRU FRIDAYS ONLY
     Route: 048
     Dates: end: 20240522

REACTIONS (2)
  - Blood creatinine increased [Unknown]
  - Glomerular filtration rate decreased [Unknown]

NARRATIVE: CASE EVENT DATE: 20240522
